FAERS Safety Report 23286294 (Version 2)
Quarter: 2023Q4

REPORT INFORMATION
  Report Type: Spontaneous
  Country: JP (occurrence: IT)
  Receive Date: 20231212
  Receipt Date: 20231227
  Transmission Date: 20240110
  Serious: Yes (Death, Hospitalization, Other)
  Sender: FDA-Public Use
  Company Number: JP-ASTRAZENECA-230073219_013120_P_1

PATIENT
  Age: 70 Year
  Sex: Male
  Weight: 51 kg

DRUGS (10)
  1. ABRAXANE [Suspect]
     Active Substance: PACLITAXEL
     Indication: Non-small cell lung cancer
     Route: 041
     Dates: start: 20230913, end: 20230913
  2. IMFINZI [Suspect]
     Active Substance: DURVALUMAB
     Indication: Non-small cell lung cancer
     Route: 041
     Dates: start: 20230913, end: 20230913
  3. TREMELIMUMAB [Suspect]
     Active Substance: TREMELIMUMAB
     Indication: Non-small cell lung cancer
     Route: 041
     Dates: start: 20230913, end: 20230913
  4. CARBOPLATIN [Suspect]
     Active Substance: CARBOPLATIN
     Indication: Non-small cell lung cancer
     Dates: start: 20230913, end: 20230913
  5. DAYVIGO [Suspect]
     Active Substance: LEMBOREXANT
     Indication: Insomnia
     Dosage: WHEN INSOMNIA, AS REQUIRED
     Route: 048
     Dates: start: 20230903
  6. SENNOSIDES A AND B [Concomitant]
     Active Substance: SENNOSIDES A AND B
     Indication: Constipation
     Dosage: WHEN CONSTIPATION, AS REQUIRED
     Route: 048
     Dates: start: 20230903
  7. LOXOPROFEN SODIUM [Concomitant]
     Active Substance: LOXOPROFEN SODIUM
     Indication: Chest pain
     Dosage: DOSE UNKNOWN
  8. TRAMADOL [Concomitant]
     Active Substance: TRAMADOL\TRAMADOL HYDROCHLORIDE
     Indication: Chest pain
     Dosage: DOSE UNKNOWN
  9. OXYCODONE HYDROCHLORIDE [Concomitant]
     Active Substance: OXYCODONE HYDROCHLORIDE
     Indication: Pain management
     Dosage: DOSE UNKNOWN
     Dates: start: 20230828
  10. OXYCODONE HYDROCHLORIDE [Concomitant]
     Active Substance: OXYCODONE HYDROCHLORIDE
     Indication: Pain management
     Dosage: DOSE UNKNOWN2.5MG UNKNOWN
     Dates: start: 20230828

REACTIONS (6)
  - Pulmonary toxicity [Fatal]
  - Cerebral infarction [Not Recovered/Not Resolved]
  - Eczema [Not Recovered/Not Resolved]
  - Atrial fibrillation [Recovered/Resolved]
  - Nausea [Recovered/Resolved]
  - Hyperglycaemia [Not Recovered/Not Resolved]

NARRATIVE: CASE EVENT DATE: 20230915
